FAERS Safety Report 5499976-3 (Version None)
Quarter: 2007Q4

REPORT INFORMATION
  Report Type: 
  Country: None (occurrence: None)
  Receive Date: 20071026
  Receipt Date: 20071016
  Transmission Date: 20080405
  Serious: Yes (Other)
  Sender: FDA-Public Use
  Company Number: US-PFIZER INC-2007089008

PATIENT
  Sex: Female
  Weight: 60 kg

DRUGS (5)
  1. CHANTIX [Suspect]
     Indication: SMOKING CESSATION THERAPY
  2. LISINOPRIL [Concomitant]
  3. WARFARIN SODIUM [Concomitant]
  4. CARTIA XT [Concomitant]
  5. HYDROCHLOROTHIAZIDE [Concomitant]

REACTIONS (3)
  - NAUSEA [None]
  - THYROID DISORDER [None]
  - THYROID NEOPLASM [None]
